FAERS Safety Report 5016590-4 (Version None)
Quarter: 2006Q2

REPORT INFORMATION
  Report Type: 
  Country: None (occurrence: None)
  Receive Date: 20060602
  Receipt Date: 20060518
  Transmission Date: 20061013
  Serious: Yes (Other)
  Sender: FDA-Public Use
  Company Number: PHBS2006JP07612

PATIENT
  Age: 63 Year
  Sex: Female
  Weight: 50 kg

DRUGS (13)
  1. NEORAL [Suspect]
     Indication: INTERSTITIAL LUNG DISEASE
     Dosage: 50 MG/D
     Route: 065
  2. NEORAL [Suspect]
     Dosage: 100 MG/D
     Route: 048
  3. MEDROL [Concomitant]
     Dosage: 20 MG/D
     Route: 048
  4. CLARITHROMYCIN [Concomitant]
  5. MUCODYNE [Concomitant]
  6. OMEPRAL [Concomitant]
  7. HUSCODE [Concomitant]
  8. LIPITOR [Concomitant]
  9. FOSAMAX [Concomitant]
  10. BASEN [Concomitant]
  11. BAKTAR [Concomitant]
  12. MAGMITT KENEI [Concomitant]
  13. DENOSINE ^TANABE^ [Suspect]

REACTIONS (3)
  - CONSTIPATION [None]
  - DRUG LEVEL INCREASED [None]
  - INTERSTITIAL LUNG DISEASE [None]
